FAERS Safety Report 12582331 (Version 1)
Quarter: 2016Q3

REPORT INFORMATION
  Report Type: Spontaneous
  Country: US (occurrence: US)
  Receive Date: 20160722
  Receipt Date: 20160722
  Transmission Date: 20161109
  Serious: Yes (Death)
  Sender: FDA-Public Use
  Company Number: US-TAIHO ONCOLOGY INC-EU-2016-01681

PATIENT
  Sex: Male

DRUGS (12)
  1. REMERON [Concomitant]
     Active Substance: MIRTAZAPINE
     Dosage: NI
  2. ALBUTEROL. [Concomitant]
     Active Substance: ALBUTEROL
     Dosage: NI
  3. LYRICA [Concomitant]
     Active Substance: PREGABALIN
     Dosage: NI
  4. HYDROCORTISONE. [Concomitant]
     Active Substance: HYDROCORTISONE
     Dosage: NI
  5. LONSURF [Suspect]
     Active Substance: TIPIRACIL HYDROCHLORIDE\TRIFLURIDINE
     Indication: COLON CANCER
     Dosage: CYCLE 2
     Route: 048
     Dates: start: 20160610
  6. CYMBALTA [Concomitant]
     Active Substance: DULOXETINE HYDROCHLORIDE
     Dosage: NI
  7. OXYCODONE [Concomitant]
     Active Substance: OXYCODONE
     Dosage: NI
  8. XANAX [Concomitant]
     Active Substance: ALPRAZOLAM
     Dosage: NI
  9. SENOKOT [Concomitant]
     Active Substance: SENNOSIDES
     Dosage: NI
  10. AMBIEN [Concomitant]
     Active Substance: ZOLPIDEM TARTRATE
     Dosage: NI
  11. MS CONTIN [Concomitant]
     Active Substance: MORPHINE SULFATE
     Dosage: NI
  12. COMPAZINE [Concomitant]
     Active Substance: PROCHLORPERAZINE MALEATE
     Dosage: NI

REACTIONS (1)
  - Death [Fatal]

NARRATIVE: CASE EVENT DATE: 2016
